FAERS Safety Report 5427191-8 (Version None)
Quarter: 2007Q3

REPORT INFORMATION
  Report Type: 
  Country: None (occurrence: None)
  Receive Date: 20070828
  Receipt Date: 20070822
  Transmission Date: 20080115
  Serious: Yes (Disabling)
  Sender: FDA-Public Use
  Company Number: JP-SP-2006-02883

PATIENT
  Age: 68 Year
  Sex: Male

DRUGS (4)
  1. IMMUCYST [Suspect]
     Indication: BLADDER CANCER STAGE I, WITH CANCER IN SITU
     Route: 043
     Dates: start: 20060628, end: 20060727
  2. IMMUCYST [Suspect]
     Route: 043
     Dates: start: 20060628, end: 20060727
  3. IMMUCYST [Suspect]
     Route: 043
     Dates: start: 20060628, end: 20060727
  4. AMLODIPINE BESYLATE [Concomitant]

REACTIONS (5)
  - ANAL FISTULA [None]
  - CYSTITIS NONINFECTIVE [None]
  - PROSTATITIS [None]
  - PYREXIA [None]
  - URGE INCONTINENCE [None]
